FAERS Safety Report 10956466 (Version 1)
Quarter: 2015Q1

REPORT INFORMATION
  Report Type: Spontaneous
  Country: US (occurrence: None)
  Receive Date: 20150325
  Receipt Date: 20150325
  Transmission Date: 20150721
  Serious: Yes (Other)
  Sender: FDA-Public Use
  Company Number: None

PATIENT
  Age: 51 Year
  Sex: Female
  Weight: 73.03 kg

DRUGS (13)
  1. LOSARTAN 100/HCTZ 25 [Concomitant]
  2. SIMVASTATIN. [Concomitant]
     Active Substance: SIMVASTATIN
  3. TRILEPTAL [Concomitant]
     Active Substance: OXCARBAZEPINE
  4. BISOPROLOL/HCTZ [Concomitant]
     Active Substance: BISOPROLOL FUMARATE\HYDROCHLOROTHIAZIDE
  5. CLONIDINE. [Concomitant]
     Active Substance: CLONIDINE
  6. FERROUS SULFATE [Concomitant]
     Active Substance: FERROUS SULFATE\FERROUS SULFATE, DRIED
  7. KCL [Concomitant]
     Active Substance: POTASSIUM CHLORIDE
  8. AMLODIPINE [Concomitant]
     Active Substance: AMLODIPINE BESYLATE
  9. LEVEMIR [Concomitant]
     Active Substance: INSULIN DETEMIR
  10. SPIRONOLACTONE. [Concomitant]
     Active Substance: SPIRONOLACTONE
  11. METFORMIN [Concomitant]
     Active Substance: METFORMIN HYDROCHLORIDE
  12. PERPHENAZINE. [Concomitant]
     Active Substance: PERPHENAZINE
  13. ABILIFY MAINTENA [Suspect]
     Active Substance: ARIPIPRAZOLE
     Indication: SCHIZOAFFECTIVE DISORDER
     Dosage: EVERY 4 WEEKS
     Route: 030
     Dates: start: 20131120, end: 20150226

REACTIONS (7)
  - Injection site mass [None]
  - Injection site pain [None]
  - Injection site necrosis [None]
  - Injection site cellulitis [None]
  - Injection site discharge [None]
  - Injection site swelling [None]
  - Purulence [None]

NARRATIVE: CASE EVENT DATE: 20150226
